FAERS Safety Report 19659058 (Version 1)
Quarter: 2021Q3

REPORT INFORMATION
  Report Type: Spontaneous
  Country: US (occurrence: US)
  Receive Date: 20210805
  Receipt Date: 20210805
  Transmission Date: 20211014
  Serious: No
  Sender: FDA-Public Use
  Company Number: US-ELI_LILLY_AND_COMPANY-US202107002709

PATIENT
  Sex: Female

DRUGS (1)
  1. BASAGLAR [Suspect]
     Active Substance: INSULIN GLARGINE
     Indication: DIABETES MELLITUS
     Dosage: 30 U, UNKNOWN
     Route: 058
     Dates: start: 20210701

REACTIONS (8)
  - Incorrect dose administered [Unknown]
  - Blood glucose increased [Unknown]
  - Incontinence [Unknown]
  - Pollakiuria [Unknown]
  - Glucose urine present [Unknown]
  - Dehydration [Unknown]
  - Hypersensitivity [Unknown]
  - Visual impairment [Not Recovered/Not Resolved]
